FAERS Safety Report 9375594 (Version 1)
Quarter: 2013Q2

REPORT INFORMATION
  Report Type: Spontaneous
  Country: IT (occurrence: IT)
  Receive Date: 20130628
  Receipt Date: 20130628
  Transmission Date: 20140414
  Serious: Yes (Life-Threatening)
  Sender: FDA-Public Use
  Company Number: PHHY2013IT066677

PATIENT
  Age: 50 Year
  Sex: Female

DRUGS (1)
  1. TRAMADOLO HEXAL [Suspect]
     Indication: HEADACHE
     Dosage: 20 GTT, ONCE/SINGLE
     Route: 048
     Dates: start: 20130607, end: 20130608

REACTIONS (1)
  - Circulatory collapse [Recovered/Resolved with Sequelae]
